FAERS Safety Report 6788885-5 (Version None)
Quarter: 2010Q2

REPORT INFORMATION
  Report Type: 
  Country: None (occurrence: None)
  Receive Date: 20100623
  Receipt Date: 20080730
  Transmission Date: 20101027
  Serious: No
  Sender: FDA-Public Use
  Company Number: US-PFIZER INC-2008047194

PATIENT

DRUGS (1)
  1. DIFLUCAN [Suspect]
     Indication: FUNGAL ENDOCARDITIS

REACTIONS (1)
  - NEUTROPENIA [None]
